FAERS Safety Report 4870154-1 (Version None)
Quarter: 2005Q4

REPORT INFORMATION
  Report Type: 
  Country: None (occurrence: None)
  Receive Date: 20051229
  Receipt Date: 20051229
  Transmission Date: 20060501
  Serious: Yes (Other)
  Sender: FDA-Public Use
  Company Number: None

PATIENT
  Age: 39 Year
  Sex: Female
  Weight: 79.3795 kg

DRUGS (1)
  1. PAROXETINE HCL [Suspect]
     Indication: DEPRESSION
     Dosage: 20 MG  TAPERING DOWN METHOD  1X EVERY OTHER DAY  PO;  20 MG  -BEFORE TAPERING-  1X DAILY  PO
     Route: 048
     Dates: start: 20010101, end: 20050101

REACTIONS (3)
  - DRUG WITHDRAWAL SYNDROME [None]
  - FEELING OF DESPAIR [None]
  - FLAT AFFECT [None]
